FAERS Safety Report 4714879-7 (Version None)
Quarter: 2005Q3

REPORT INFORMATION
  Report Type: 
  Country: None (occurrence: None)
  Receive Date: 20050713
  Receipt Date: 20050628
  Transmission Date: 20060218
  Serious: Yes (Other)
  Sender: FDA-Public Use
  Company Number: 106984ISR

PATIENT
  Age: 27 Year
  Sex: Male

DRUGS (2)
  1. PREDNISOLONE [Suspect]
     Indication: PYODERMA GANGRENOSUM
  2. METHOTREXATE [Suspect]
     Indication: PYODERMA GANGRENOSUM
     Dosage: 15 MILLIGRAM QW

REACTIONS (2)
  - HEPATIC FIBROSIS [None]
  - LIVER FUNCTION TEST ABNORMAL [None]
